FAERS Safety Report 23952594 (Version 1)
Quarter: 2024Q2

REPORT INFORMATION
  Report Type: Spontaneous
  Country: US (occurrence: US)
  Receive Date: 20240607
  Receipt Date: 20240607
  Transmission Date: 20240715
  Serious: Yes (Other)
  Sender: FDA-Public Use
  Company Number: US-JNJFOC-20240586102

PATIENT

DRUGS (1)
  1. REMICADE [Suspect]
     Active Substance: INFLIXIMAB
     Indication: Product used for unknown indication
     Route: 041

REACTIONS (7)
  - Fistula [Unknown]
  - Inflammatory marker increased [Unknown]
  - Anal incontinence [Unknown]
  - Frequent bowel movements [Unknown]
  - Haemorrhoids [Unknown]
  - Food intolerance [Unknown]
  - Drug ineffective [Unknown]
